FAERS Safety Report 8688238 (Version 4)
Quarter: 2012Q4

REPORT INFORMATION
  Report Type: Report from Study
  Country: CH (occurrence: CH)
  Receive Date: 20120727
  Receipt Date: 20120917
  Transmission Date: 20130627
  Serious: Yes (Hospitalization)
  Sender: FDA-Public Use
  Company Number: CH-BRISTOL-MYERS SQUIBB COMPANY-16793937

PATIENT
  Age: 70 Year
  Sex: Male

DRUGS (2)
  1. CETUXIMAB [Suspect]
     Indication: TONGUE NEOPLASM MALIGNANT STAGE UNSPECIFIED
     Dosage: 250 mg/m2,500 mg.m2 in adjuvant cycle
11-11May12,720mg
18-18May12,450MG
11Jul12-unk,965mg
     Route: 042
     Dates: start: 20120511
  2. CISPLATIN [Suspect]
     Indication: TONGUE NEOPLASM MALIGNANT STAGE UNSPECIFIED
     Dosage: Last dose on 07Jun2012
     Route: 042
     Dates: start: 20120518, end: 20120706

REACTIONS (1)
  - Hepatic cirrhosis [Recovered/Resolved]
